FAERS Safety Report 18916348 (Version 1)
Quarter: 2021Q1

REPORT INFORMATION
  Report Type: Spontaneous
  Country: FR (occurrence: FR)
  Receive Date: 20210219
  Receipt Date: 20210219
  Transmission Date: 20210420
  Serious: Yes (Death)
  Sender: FDA-Public Use
  Company Number: FR-PFIZER INC-2021157287

PATIENT

DRUGS (1)
  1. BOSULIF [Suspect]
     Active Substance: BOSUTINIB MONOHYDRATE
     Dosage: 200 MG, DAILY

REACTIONS (1)
  - Death [Fatal]

NARRATIVE: CASE EVENT DATE: 20210131
